FAERS Safety Report 12393109 (Version 2)
Quarter: 2016Q2

REPORT INFORMATION
  Report Type: Spontaneous
  Country: US (occurrence: US)
  Receive Date: 20160523
  Receipt Date: 20160606
  Transmission Date: 20160815
  Serious: No
  Sender: FDA-Public Use
  Company Number: US-PFIZER INC-2016115744

PATIENT
  Age: 67 Year
  Sex: Male
  Weight: 95.25 kg

DRUGS (67)
  1. SUTENT [Suspect]
     Active Substance: SUNITINIB MALATE
     Indication: METASTATIC RENAL CELL CARCINOMA
     Dosage: 50 MG, 1X/DAY
     Route: 048
  2. ZYRTEC [Concomitant]
     Active Substance: CETIRIZINE HYDROCHLORIDE
     Dosage: 10 MG, UNK
     Route: 048
  3. MEGACE [Concomitant]
     Active Substance: MEGESTROL ACETATE
     Dosage: 10 ML, 2X/DAY
  4. TOPROL XL [Concomitant]
     Active Substance: METOPROLOL SUCCINATE
     Dosage: 25 MG, UNK
  5. NAPROSYN [Concomitant]
     Active Substance: NAPROXEN
     Dosage: 500 MG, 2X/DAY
     Route: 048
  6. NEXAVAR [Concomitant]
     Active Substance: SORAFENIB
     Dosage: 200 MG, 2X/DAY
     Route: 048
  7. NEXAVAR [Concomitant]
     Active Substance: SORAFENIB
     Dosage: UNK
     Dates: end: 20151228
  8. PROVENTIL HFA [Concomitant]
     Active Substance: ALBUTEROL SULFATE
     Dosage: UNK
  9. SORAFENIB [Concomitant]
     Active Substance: SORAFENIB
     Dosage: 400 MG, 1X/DAY
     Dates: start: 201405
  10. OMEPRAZOLE. [Concomitant]
     Active Substance: OMEPRAZOLE
     Dosage: UNK
  11. HYDROCHLOROTHIAZIDE. [Concomitant]
     Active Substance: HYDROCHLOROTHIAZIDE
     Dosage: UNK
  12. SUTENT [Suspect]
     Active Substance: SUNITINIB MALATE
     Dosage: 50 MG, CYCLIC (QD X28 D, REST 14D)
     Route: 048
  13. LASIX [Concomitant]
     Active Substance: FUROSEMIDE
     Dosage: 20 MG, UNK
  14. SUNMARK GLUCOSE [Concomitant]
     Dosage: 4 G, UNK
     Route: 048
  15. NOVOLOG [Concomitant]
     Active Substance: INSULIN ASPART
     Dosage: 100 ML, UNK (INJECT UNDER THE SKIN)
  16. ZESTRIL [Concomitant]
     Active Substance: LISINOPRIL
     Dosage: 40 MG, UNK
     Route: 048
  17. ZANTAC [Concomitant]
     Active Substance: RANITIDINE HYDROCHLORIDE
     Dosage: 300 MG, 1X/DAY
     Route: 048
  18. SORAFENIB [Concomitant]
     Active Substance: SORAFENIB
     Dosage: UNK
     Dates: start: 201404
  19. LANTUS [Concomitant]
     Active Substance: INSULIN GLARGINE
     Dosage: UNK
  20. ZYRTEC [Concomitant]
     Active Substance: CETIRIZINE HYDROCHLORIDE
     Dosage: UNK
  21. SUTENT [Suspect]
     Active Substance: SUNITINIB MALATE
     Dosage: 50 MG, CYCLIC (28 DAYS ON AND 14 DAYS OFF)
     Dates: start: 20160229
  22. SUTENT [Suspect]
     Active Substance: SUNITINIB MALATE
     Dosage: UNK, CYCLIC (4 WEEKS ON AND 2 WEEKS OFF)
  23. NORVASC [Concomitant]
     Active Substance: AMLODIPINE BESYLATE
     Dosage: 10 MG, UNK
     Route: 048
  24. ECOTRIN [Concomitant]
     Active Substance: ASPIRIN
     Dosage: 325 MG, UNK
     Route: 048
  25. SYNTHROID [Concomitant]
     Active Substance: LEVOTHYROXINE SODIUM
     Dosage: 75 UG, UNK
     Route: 048
  26. LEVOTHROID [Concomitant]
     Active Substance: LEVOTHYROXINE SODIUM
     Dosage: 75 UG, UNK
     Route: 048
  27. DITROPAN [Concomitant]
     Active Substance: OXYBUTYNIN CHLORIDE
     Dosage: 5 MG, 3X/DAY
  28. POLYETHYLENE GLYCOL 3350 GRAN [Concomitant]
     Dosage: UNK
  29. K-DUR [Concomitant]
     Active Substance: POTASSIUM CHLORIDE
     Dosage: 10 MEQ, 2X/DAY
     Route: 048
  30. SUTENT [Suspect]
     Active Substance: SUNITINIB MALATE
     Dosage: 2 DF, 2X/DAY
  31. VITAMIN B12 [Concomitant]
     Active Substance: CYANOCOBALAMIN
     Dosage: 1000 UG, UNK
     Route: 048
  32. APRESOLINE HYDROCHLORIDE [Concomitant]
     Active Substance: HYDRALAZINE HYDROCHLORIDE
     Dosage: 50 MG, 3X/DAY
  33. HUMULIN R [Concomitant]
     Active Substance: INSULIN HUMAN
     Dosage: UNK, 3X/DAY (100 UNITIML /INJECT UNDER THE SKIN 3 (THREE) TIMES A DAY BEFORE MEALS.)
  34. MAGNESIUM CALCIUM [Concomitant]
     Dosage: UNK (64-106 MG)
     Route: 048
  35. AMLODIPINE [Concomitant]
     Active Substance: AMLODIPINE BESYLATE
     Dosage: UNK
  36. HYDRALAZINE [Concomitant]
     Active Substance: HYDRALAZINE HYDROCHLORIDE
     Dosage: UNK
  37. SUTENT [Suspect]
     Active Substance: SUNITINIB MALATE
     Dosage: 2 DF, 1X/DAY
  38. GLUCAGON EMERGENCY KIT [Concomitant]
     Active Substance: GLUCAGON
     Dosage: 1 MG, UNK
  39. HUMULIN NOS [Concomitant]
     Active Substance: INSULIN HUMAN
     Dosage: UNK, 2X/DAY (100 UNIT/ML INJECTION/INJECT UNDER THE SKIN 2 (TWO) TIMES A DAY BEFORE MEALS)
  40. NOVOLIN [Concomitant]
     Active Substance: INSULIN HUMAN
     Dosage: UNK, 2X/DAY (100 UNIT/ML INJECTION/INJECT UNDER THE SKIN 2 (TWO) TIMES A DAY BEFORE MEALS)
  41. PRINIVIL [Concomitant]
     Active Substance: LISINOPRIL
     Dosage: 40 MG, UNK
     Route: 048
  42. SPIRIVA [Concomitant]
     Active Substance: TIOTROPIUM BROMIDE MONOHYDRATE
     Dosage: 18 UG, UNK
     Route: 045
  43. MORPHINE  MSIR [Concomitant]
     Indication: PAIN
     Dosage: 15 MG, AS NEEDED
     Route: 048
  44. LEVOTHYROXINE. [Concomitant]
     Active Substance: LEVOTHYROXINE
     Dosage: UNK
  45. GLYBURIDE. [Concomitant]
     Active Substance: GLYBURIDE
     Dosage: UNK
  46. MORPHINE [Concomitant]
     Active Substance: MORPHINE
     Dosage: UNK
  47. POLYETHYLENE [Concomitant]
     Active Substance: HIGH DENSITY POLYETHYLENE
     Dosage: UNK
  48. SUTENT [Suspect]
     Active Substance: SUNITINIB MALATE
     Dosage: UNK, CYCLIC (2 WEEKS ON AND 1 WEEK OFF )
  49. STOOL SOFTENER [Concomitant]
     Active Substance: DOCUSATE CALCIUM
     Dosage: 100 MG, UNK
     Route: 048
  50. HYDRODIURIL [Concomitant]
     Active Substance: HYDROCHLOROTHIAZIDE
     Dosage: 25 MG, DAILY
     Route: 048
  51. GLUCOPHAGE [Concomitant]
     Active Substance: METFORMIN HYDROCHLORIDE
     Dosage: 1000 MG, 2X/DAY
     Route: 048
  52. NORCO [Concomitant]
     Active Substance: ACETAMINOPHEN\HYDROCODONE BITARTRATE
     Indication: PAIN
     Dosage: 1 DF, AS NEEDED (HYDROCODONE-ACETAMINOPHEN 10-325 MG)
  53. MORPHINE  MSIR [Concomitant]
     Dosage: 15 MG, 2X/DAY
     Route: 048
  54. NAPROXEN. [Concomitant]
     Active Substance: NAPROXEN
     Dosage: UNK
  55. GLUCAGON. [Concomitant]
     Active Substance: GLUCAGON
     Dosage: UNK
  56. DIABETA [Concomitant]
     Active Substance: GLYBURIDE
     Dosage: 5 MG, DAILY
     Route: 048
  57. CHOLECALCIFEROL [Concomitant]
     Active Substance: CHOLECALCIFEROL
     Dosage: UNK (2000 UNITS CAPS)
     Route: 048
  58. PRILOSEC [Concomitant]
     Active Substance: OMEPRAZOLE MAGNESIUM
     Dosage: 20 MG, UNK
  59. PRAVACHOL [Concomitant]
     Active Substance: PRAVASTATIN SODIUM
     Dosage: 40 MG, UNK
     Route: 048
  60. LISINOPRIL. [Concomitant]
     Active Substance: LISINOPRIL
     Dosage: UNK
  61. OXYBUTYNIN [Concomitant]
     Active Substance: OXYBUTYNIN
     Dosage: UNK
  62. PRAVASTATIN [Concomitant]
     Active Substance: PRAVASTATIN\PRAVASTATIN SODIUM
     Dosage: UNK
  63. SPIRIVA [Concomitant]
     Active Substance: TIOTROPIUM BROMIDE MONOHYDRATE
     Dosage: UNK
  64. LANTUS SOLOSTAR [Concomitant]
     Active Substance: INSULIN GLARGINE
     Dosage: UNK (INJECT 34 UNITS UNDER THE SKIN AT BEDTIME)
     Route: 058
  65. MS CONTIN [Concomitant]
     Active Substance: MORPHINE SULFATE
     Dosage: 15 MG, 2X/DAY
     Route: 048
  66. METOPROLOL. [Concomitant]
     Active Substance: METOPROLOL
     Dosage: UNK
  67. ALBUTEROL. [Concomitant]
     Active Substance: ALBUTEROL
     Dosage: UNK

REACTIONS (7)
  - Glossodynia [Unknown]
  - Diarrhoea [Not Recovered/Not Resolved]
  - Malaise [Not Recovered/Not Resolved]
  - Skin exfoliation [Not Recovered/Not Resolved]
  - Vomiting [Not Recovered/Not Resolved]
  - Chills [Not Recovered/Not Resolved]
  - Decreased appetite [Not Recovered/Not Resolved]
